FAERS Safety Report 6749990-2 (Version None)
Quarter: 2010Q2

REPORT INFORMATION
  Report Type: 
  Country: None (occurrence: None)
  Receive Date: 20100601
  Receipt Date: 20100519
  Transmission Date: 20101027
  Serious: Yes (Hospitalization)
  Sender: FDA-Public Use
  Company Number: US-ELI_LILLY_AND_COMPANY-US201005007413

PATIENT
  Sex: Female
  Weight: 67.7 kg

DRUGS (8)
  1. GEMCITABINE HYDROCHLORIDE [Suspect]
     Indication: LARGE CELL LUNG CANCER STAGE IV
     Dosage: 1312.5 MG, OTHER
     Route: 042
     Dates: start: 20100312, end: 20100512
  2. CETUXIMAB [Suspect]
     Indication: LARGE CELL LUNG CANCER STAGE IV
     Dosage: 437.5 MG, OTHER
     Route: 042
     Dates: start: 20100312, end: 20100512
  3. CISPLATIN [Suspect]
     Indication: LARGE CELL LUNG CANCER STAGE IV
     Dosage: 98 MG, OTHER
     Route: 042
     Dates: start: 20100312
  4. IBUPROFEN [Concomitant]
  5. AMBIEN [Concomitant]
     Dosage: 10 MG, DAILY (1/D)
     Dates: start: 20100226
  6. ELAVIL [Concomitant]
     Dosage: 50 MG, DAILY (1/D)
  7. XANAX [Concomitant]
     Dosage: 0.5 MG, DAILY (1/D)
  8. ARIXTRA [Concomitant]
     Indication: DEEP VEIN THROMBOSIS
     Dosage: 7.5 MG, DAILY (1/D)
     Route: 058
     Dates: start: 20100415

REACTIONS (1)
  - PNEUMONIA [None]
